FAERS Safety Report 18000950 (Version 2)
Quarter: 2020Q4

REPORT INFORMATION
  Report Type: Spontaneous
  Country: US (occurrence: US)
  Receive Date: 20200709
  Receipt Date: 20201015
  Transmission Date: 20210113
  Serious: Yes (Hospitalization, Other)
  Sender: FDA-Public Use
  Company Number: US-TEVA-2020-US-1799594

PATIENT
  Sex: Male

DRUGS (5)
  1. AMLODIPINE/VALSARTAN ACETERIS/AUROBINDO [Suspect]
     Active Substance: AMLODIPINE\VALSARTAN
     Indication: HYPERTENSION
     Dosage: AMLODIPINE 5MG/VALSARTAN 320 MG
     Route: 065
     Dates: start: 20140703, end: 201602
  2. AMLODIPINE/VALSARTAN MYLAN 10 MG/160 MG FILM-COATED TABLETS [Suspect]
     Active Substance: AMLODIPINE\VALSARTAN
     Dosage: AMLODIPINE 5MG/VALSARTAN 320 MG
     Route: 065
     Dates: start: 20150709, end: 201711
  3. VALSARTAN/HYDROCHLOROTHIAZIDE MYLAN [Suspect]
     Active Substance: HYDROCHLOROTHIAZIDE\VALSARTAN
     Indication: HYPERTENSION
     Dosage: VALSARTAN 320 MG/HYDROCHLOROTHIAZIDE 25 MG
     Route: 065
     Dates: start: 20150109, end: 201502
  4. AMLODIPINE/VALSARTAN MYLAN 10 MG/160 MG FILM-COATED TABLETS [Suspect]
     Active Substance: AMLODIPINE\VALSARTAN
     Indication: HYPERTENSION
     Dosage: AMLODIPINE 5MG/VALSARTAN 320 MG
     Route: 065
     Dates: start: 20160201, end: 201605
  5. VALSARTAN/HYDROCHLOROTHIAZIDE ACETERIS/AUROBINDO [Suspect]
     Active Substance: HYDROCHLOROTHIAZIDE\VALSARTAN
     Indication: HYPERTENSION
     Dosage: VALSARTAN 320 MG/HYDROCHLOROTHIAZIDE 25 MG
     Route: 065
     Dates: start: 20140703, end: 201602

REACTIONS (3)
  - Colorectal cancer stage IV [Recovered/Resolved]
  - Metastases to liver [Recovered/Resolved]
  - Metastases to central nervous system [Recovered/Resolved]
